FAERS Safety Report 7659046 (Version 3)
Quarter: 2013Q2

REPORT INFORMATION
  Report Type: Report from Study
  Country: DE (occurrence: DE)
  Receive Date: 20101108
  Receipt Date: 20130506
  Transmission Date: 20140414
  Serious: Yes (Life-Threatening, Hospitalization)
  Sender: FDA-Public Use
  Company Number: DE-BIOGENIDEC-2010BI038281

PATIENT
  Age: 36 Year
  Sex: Female
  Weight: 70 kg

DRUGS (4)
  1. TYSABRI [Suspect]
     Indication: RELAPSING-REMITTING MULTIPLE SCLEROSIS
     Route: 042
     Dates: start: 20091217, end: 20100929
  2. PROPIVERINE HYDROCHLORIDE [Concomitant]
  3. DOXEPIN [Concomitant]
  4. VESIKUR [Concomitant]

REACTIONS (1)
  - Pulmonary embolism [Recovered/Resolved with Sequelae]
